FAERS Safety Report 17016342 (Version 1)
Quarter: 2019Q4

REPORT INFORMATION
  Report Type: Spontaneous
  Country: AU (occurrence: AU)
  Receive Date: 20191111
  Receipt Date: 20191111
  Transmission Date: 20200122
  Serious: Yes (Disabling)
  Sender: FDA-Public Use
  Company Number: AU-PFIZER INC-2019389261

PATIENT
  Age: 14 Year
  Sex: Male
  Weight: 44.8 kg

DRUGS (1)
  1. GENOTROPIN GOQUICK [Suspect]
     Active Substance: SOMATROPIN
     Indication: BODY HEIGHT BELOW NORMAL
     Dosage: 8.5 MG, WEEKLY
     Route: 058
     Dates: start: 201308, end: 201610

REACTIONS (1)
  - Scoliosis [Not Recovered/Not Resolved]

NARRATIVE: CASE EVENT DATE: 20160105
